FAERS Safety Report 10256470 (Version 1)
Quarter: 2014Q2

REPORT INFORMATION
  Report Type: Report from Study
  Country: DE (occurrence: DE)
  Receive Date: 20140624
  Receipt Date: 20140624
  Transmission Date: 20141212
  Serious: Yes (Hospitalization)
  Sender: FDA-Public Use
  Company Number: DE-JNJFOC-20130806695

PATIENT
  Sex: 0

DRUGS (7)
  1. XARELTO [Suspect]
     Indication: THROMBOSIS PROPHYLAXIS
     Route: 048
     Dates: start: 20120907, end: 20120927
  2. XARELTO [Suspect]
     Indication: THROMBOSIS PROPHYLAXIS
     Route: 048
     Dates: start: 20120928
  3. XARELTO [Suspect]
     Indication: DEEP VEIN THROMBOSIS
     Route: 048
     Dates: start: 20120928
  4. XARELTO [Suspect]
     Indication: DEEP VEIN THROMBOSIS
     Route: 048
     Dates: start: 20120907, end: 20120927
  5. OLMETEC [Concomitant]
     Route: 065
     Dates: start: 200907
  6. LANTUS [Concomitant]
     Route: 065
     Dates: start: 201002
  7. NOVORAPID [Concomitant]
     Route: 065
     Dates: start: 201002

REACTIONS (1)
  - Intervertebral disc protrusion [Not Recovered/Not Resolved]
